FAERS Safety Report 5828275-2 (Version None)
Quarter: 2008Q3

REPORT INFORMATION
  Report Type: 
  Country: None (occurrence: None)
  Receive Date: 20080729
  Receipt Date: 20080729
  Transmission Date: 20090109
  Serious: No
  Sender: FDA-Public Use
  Company Number: None

PATIENT
  Age: 62 Year
  Sex: Female
  Weight: 77.3383 kg

DRUGS (2)
  1. FEXOFENADINE [Suspect]
     Indication: ASTHMA
     Dosage: ONE PO QD
     Route: 048
     Dates: start: 20060426, end: 20060501
  2. FEXOFENADINE [Suspect]
     Indication: HYPERSENSITIVITY
     Dosage: ONE PO QD
     Route: 048
     Dates: start: 20060426, end: 20060501

REACTIONS (2)
  - HEADACHE [None]
  - PHARMACEUTICAL PRODUCT COMPLAINT [None]
